FAERS Safety Report 6198029-9 (Version None)
Quarter: 2009Q2

REPORT INFORMATION
  Report Type: 
  Country: None (occurrence: None)
  Receive Date: 20090518
  Receipt Date: 20090508
  Transmission Date: 20091009
  Serious: Yes (Hospitalization)
  Sender: FDA-Public Use
  Company Number: MPS1-1000218

PATIENT
  Age: 14 Year
  Sex: Female
  Weight: 15.4 kg

DRUGS (1)
  1. ALDURAZYME [Suspect]
     Indication: MUCOPOLYSACCHARIDOSIS
     Dosage: 8.7 MG, QOW
     Dates: start: 20031009

REACTIONS (7)
  - BLOOD PRESSURE FLUCTUATION [None]
  - CATHETER SITE OEDEMA [None]
  - CONVULSION [None]
  - INCREASED UPPER AIRWAY SECRETION [None]
  - PNEUMONIA [None]
  - PNEUMONIA ASPIRATION [None]
  - WEIGHT DECREASED [None]
